FAERS Safety Report 5434274-5 (Version None)
Quarter: 2007Q3

REPORT INFORMATION
  Report Type: 
  Country: None (occurrence: None)
  Receive Date: 20070828
  Receipt Date: 20070828
  Transmission Date: 20080115
  Serious: No
  Sender: FDA-Public Use
  Company Number: None

PATIENT
  Sex: Male
  Weight: 81.6475 kg

DRUGS (1)
  1. OXYCONTIN [Suspect]
     Indication: RHEUMATOID ARTHRITIS
     Dosage: 2 TABS Q6 Q6 ORAL
     Route: 048
     Dates: start: 20040916, end: 20041016

REACTIONS (1)
  - DRUG EFFECT DECREASED [None]
